FAERS Safety Report 8854844 (Version 1)
Quarter: 2012Q4

REPORT INFORMATION
  Report Type: 
  Country: GB (occurrence: GB)
  Receive Date: 20121023
  Receipt Date: 20121023
  Transmission Date: 20130627
  Serious: Yes (Other)
  Sender: FDA-Public Use
  Company Number: PHFR2012GB005454

PATIENT
  Sex: Female

DRUGS (1)
  1. GLIVEC [Suspect]

REACTIONS (2)
  - Gastrointestinal necrosis [Unknown]
  - Abdominal pain [Unknown]
